FAERS Safety Report 8625214-6 (Version None)
Quarter: 2012Q3

REPORT INFORMATION
  Report Type: 
  Country: None (occurrence: None)
  Receive Date: 20120827
  Receipt Date: 20120817
  Transmission Date: 20120928
  Serious: Yes (Hospitalization)
  Sender: FDA-Public Use
  Company Number: CO-BAXTER-2012BAX015129

PATIENT
  Sex: Female

DRUGS (10)
  1. DIANEAL PD-2 W/ DEXTROSE 1.5% [Suspect]
     Route: 033
     Dates: end: 20120816
  2. BECLOMETHASONE DIPROPIONATE [Concomitant]
     Indication: CHRONIC OBSTRUCTIVE PULMONARY DISEASE
  3. CALCITRIOL [Concomitant]
     Route: 048
  4. EPOGEN [Concomitant]
     Route: 058
  5. CALCIUM CARBONATE [Concomitant]
     Route: 048
  6. DIANEAL PD-2 W/ DEXTROSE 1.5% [Suspect]
     Indication: RENAL FAILURE CHRONIC
     Route: 033
     Dates: end: 20120816
  7. IPRATROPIUM BROMIDE [Concomitant]
     Indication: CHRONIC OBSTRUCTIVE PULMONARY DISEASE
  8. VITAMIN B COMPLEX CAP [Concomitant]
     Route: 048
  9. DIANEAL PD-2 W/ DEXTROSE 1.5% [Suspect]
     Indication: PERITONEAL LAVAGE
     Route: 033
     Dates: start: 20120815, end: 20120815
  10. FOLIC ACID [Concomitant]
     Route: 048

REACTIONS (8)
  - DYSPNOEA [None]
  - POSTOPERATIVE WOUND INFECTION [None]
  - RESTLESSNESS [None]
  - SOFT TISSUE INFECTION [None]
  - PRURITUS [None]
  - DEVICE RELATED INFECTION [None]
  - RASH [None]
  - AZOTAEMIA [None]
